FAERS Safety Report 17889763 (Version 4)
Quarter: 2020Q4

REPORT INFORMATION
  Report Type: Report from Study
  Country: US (occurrence: US)
  Receive Date: 20200612
  Receipt Date: 20201121
  Transmission Date: 20210113
  Serious: Yes (Other)
  Sender: FDA-Public Use
  Company Number: NVSC2020US161162

PATIENT
  Sex: Male

DRUGS (2)
  1. BEOVU [Suspect]
     Active Substance: BROLUCIZUMAB-DBLL
     Indication: NEOVASCULAR AGE-RELATED MACULAR DEGENERATION
     Dosage: UNK
     Route: 047
  2. BEOVU [Suspect]
     Active Substance: BROLUCIZUMAB-DBLL
     Dosage: UNK
     Route: 047
     Dates: start: 20200107

REACTIONS (7)
  - Blindness unilateral [Unknown]
  - Visual acuity reduced [Recovering/Resolving]
  - Memory impairment [Unknown]
  - Vision blurred [Unknown]
  - Photophobia [Unknown]
  - Pain [Unknown]
  - Drug ineffective [Unknown]
